FAERS Safety Report 9858446 (Version 1)
Quarter: 2014Q1

REPORT INFORMATION
  Report Type: Spontaneous
  Country: US (occurrence: None)
  Receive Date: 20140130
  Receipt Date: 20140130
  Transmission Date: 20141002
  Serious: No
  Sender: FDA-Public Use
  Company Number: None

PATIENT
  Age: 9 Year
  Sex: Female
  Weight: 26.4 kg

DRUGS (3)
  1. MERCAPTOPURINE [Suspect]
  2. METHOTREXATE [Suspect]
  3. VINCRISTINE SULFATE [Suspect]

REACTIONS (1)
  - Alanine aminotransferase abnormal [None]
